FAERS Safety Report 6912513-9 (Version None)
Quarter: 2010Q3

REPORT INFORMATION
  Report Type: 
  Country: None (occurrence: None)
  Receive Date: 20100806
  Receipt Date: 20080622
  Transmission Date: 20110219
  Serious: No
  Sender: FDA-Public Use
  Company Number: US-PFIZER INC-2008052668

PATIENT
  Sex: Female
  Weight: 105 kg

DRUGS (4)
  1. DETROL LA [Suspect]
     Indication: HYPERTONIC BLADDER
     Dates: start: 20080613
  2. SYNTHROID [Concomitant]
     Indication: THYROID DISORDER
  3. LISINOPRIL [Concomitant]
     Indication: HYPERTENSION
  4. ALL OTHER THERAPEUTIC PRODUCTS [Concomitant]
     Route: 045

REACTIONS (1)
  - MUSCLE SPASMS [None]
